FAERS Safety Report 5045728-8 (Version None)
Quarter: 2006Q2

REPORT INFORMATION
  Report Type: 
  Country: None (occurrence: None)
  Receive Date: 20060601
  Receipt Date: 20060213
  Transmission Date: 20061013
  Serious: No
  Sender: FDA-Public Use
  Company Number: 2006-BP-00048BP

PATIENT
  Sex: Female

DRUGS (5)
  1. SPIRIVA [Suspect]
     Indication: CHRONIC OBSTRUCTIVE PULMONARY DISEASE
     Dosage: 18 MCG (18 MCG,1 PUFF AM),IH
     Dates: start: 20051230
  2. LISINOPRIL [Concomitant]
  3. NEXIUM [Concomitant]
  4. RHINOCORT [Concomitant]
  5. DELSYM [Concomitant]

REACTIONS (3)
  - DYSPHONIA [None]
  - EYELIDS PRURITUS [None]
  - INCREASED UPPER AIRWAY SECRETION [None]
